FAERS Safety Report 23766171 (Version 1)
Quarter: 2024Q2

REPORT INFORMATION
  Report Type: Spontaneous
  Country: US (occurrence: US)
  Receive Date: 20240422
  Receipt Date: 20240422
  Transmission Date: 20240716
  Serious: No
  Sender: FDA-Public Use
  Company Number: US-FDC-2024USSPO00252

PATIENT
  Sex: Male

DRUGS (1)
  1. TIMOLOL MALEATE [Suspect]
     Active Substance: TIMOLOL MALEATE
     Indication: Product used for unknown indication
     Route: 065

REACTIONS (8)
  - Swelling face [None]
  - Erythema [None]
  - Eye injury [None]
  - Eye pain [None]
  - Peripheral swelling [None]
  - Eye infection [None]
  - Musculoskeletal discomfort [None]
  - Ocular hyperaemia [None]
